FAERS Safety Report 8485655-7 (Version None)
Quarter: 2012Q3

REPORT INFORMATION
  Report Type: 
  Country: None (occurrence: None)
  Receive Date: 20120703
  Receipt Date: 20120619
  Transmission Date: 20120928
  Serious: Yes (Other)
  Sender: FDA-Public Use
  Company Number: DE-CELGENEUS-062-50794-12062935

PATIENT

DRUGS (3)
  1. PANOBINOSTAT [Concomitant]
     Dosage: + 10 MG DOSE INCREMENTS
     Route: 048
  2. VIDAZA [Suspect]
     Route: 058
  3. PANOBINOSTAT [Concomitant]
     Dosage: 30 MILLIGRAM
     Route: 048

REACTIONS (17)
  - SYNCOPE [None]
  - NAUSEA [None]
  - HYPERBILIRUBINAEMIA [None]
  - DEHYDRATION [None]
  - DIARRHOEA [None]
  - DECREASED APPETITE [None]
  - CONDITION AGGRAVATED [None]
  - THROMBOCYTOPENIA [None]
  - FEBRILE NEUTROPENIA [None]
  - VOMITING [None]
  - NEUTROPENIA [None]
  - ELECTROCARDIOGRAM T WAVE INVERSION [None]
  - ASTHENIA [None]
  - GASTROINTESTINAL DISORDER [None]
  - FATIGUE [None]
  - ATRIAL FIBRILLATION [None]
  - COLITIS [None]
